FAERS Safety Report 25406548 (Version 7)
Quarter: 2025Q3

REPORT INFORMATION
  Report Type: Report from Study
  Country: US (occurrence: US)
  Receive Date: 20250606
  Receipt Date: 20250722
  Transmission Date: 20251020
  Serious: Yes (Other)
  Sender: MALLINCKRODT
  Company Number: US-MALLINCKRODT-MNK202503294

PATIENT
  Age: 55 Year
  Sex: Female
  Weight: 190 kg

DRUGS (16)
  1. CORTICOTROPIN [Suspect]
     Active Substance: CORTICOTROPIN
     Indication: Rheumatoid arthritis
     Route: 058
     Dates: start: 202505
  2. MOUNJARO [Concomitant]
     Active Substance: TIRZEPATIDE
     Dosage: 5/.05 MG
  3. RITUXAN [Concomitant]
     Active Substance: RITUXIMAB
  4. AZATHIOPRINE [Concomitant]
     Active Substance: AZATHIOPRINE
  5. ASPIRIN [Concomitant]
     Active Substance: ASPIRIN
  6. BREZTRI [Concomitant]
     Active Substance: BUDESONIDE\FORMOTEROL\GLYCOPYRROLATE
     Route: 055
  7. EZETIMIBE [Concomitant]
     Active Substance: EZETIMIBE
     Route: 048
  8. GLIPIZIDE [Concomitant]
     Active Substance: GLIPIZIDE
  9. LEVOTHYROXINE [Concomitant]
     Active Substance: LEVOTHYROXINE
     Route: 048
  10. LOSARTAN [Concomitant]
     Active Substance: LOSARTAN
  11. LATANOPROST [Concomitant]
     Active Substance: LATANOPROST
     Dosage: 1 DROP IN EACH EYE UNIT
  12. METFORMIN HYDROCHLORIDE [Concomitant]
     Active Substance: METFORMIN HYDROCHLORIDE
  13. PRIMIDONE [Concomitant]
     Active Substance: PRIMIDONE
     Route: 048
  14. TRUXIMA [Concomitant]
     Active Substance: RITUXIMAB-ABBS
  15. ROSUVASTATIN [Concomitant]
     Active Substance: ROSUVASTATIN
  16. ZYRTEC [Concomitant]
     Active Substance: CETIRIZINE HYDROCHLORIDE
     Dosage: 10

REACTIONS (10)
  - Nasal septum deviation [Recovering/Resolving]
  - Venous injury [Unknown]
  - Blood glucose increased [Recovering/Resolving]
  - Procedural pain [Unknown]
  - Nerve injury [Unknown]
  - Diarrhoea [Recovered/Resolved]
  - Injection site pain [Unknown]
  - Injection site bruising [Unknown]
  - Injection site haemorrhage [Unknown]
  - Hypersensitivity [Unknown]

NARRATIVE: CASE EVENT DATE: 20250101
